FAERS Safety Report 15843776 (Version 1)
Quarter: 2019Q1

REPORT INFORMATION
  Report Type: Report from Study
  Country: CN (occurrence: CN)
  Receive Date: 20190118
  Receipt Date: 20190118
  Transmission Date: 20190417
  Serious: Yes (Other)
  Sender: FDA-Public Use
  Company Number: CN-BAYER-2019-013010

PATIENT
  Age: 68 Year
  Sex: Male

DRUGS (2)
  1. ASPIRIN. [Suspect]
     Active Substance: ASPIRIN
     Dosage: UNK UNK, QD
     Route: 048
  2. MANNITOL. [Concomitant]
     Active Substance: MANNITOL
     Indication: DEHYDRATION

REACTIONS (3)
  - Intraventricular haemorrhage [None]
  - Hypertensive cerebrovascular disease [None]
  - Thalamus haemorrhage [None]
